FAERS Safety Report 12856240 (Version 4)
Quarter: 2017Q3

REPORT INFORMATION
  Report Type: Report from Study
  Country: FR (occurrence: FR)
  Receive Date: 20161018
  Receipt Date: 20170915
  Transmission Date: 20171127
  Serious: Yes (Disabling)
  Sender: FDA-Public Use
  Company Number: FR-ROCHE-1841589

PATIENT
  Age: 72 Year
  Sex: Female
  Weight: 67 kg

DRUGS (40)
  1. INIPOMP [Concomitant]
     Active Substance: PANTOPRAZOLE SODIUM
     Indication: PROPHYLAXIS
     Route: 048
     Dates: end: 20161008
  2. WELLVONE [Concomitant]
     Active Substance: ATOVAQUONE
     Indication: INFECTION PROPHYLAXIS
     Route: 048
     Dates: end: 20161009
  3. CYCLOSPORINE. [Concomitant]
     Active Substance: CYCLOSPORINE
     Route: 048
     Dates: end: 20161009
  4. PARACETAMOL [Concomitant]
     Active Substance: ACETAMINOPHEN
     Indication: FEBRILE NEUTROPENIA
     Route: 042
     Dates: start: 20160917, end: 20160919
  5. SOLU-MEDROL [Concomitant]
     Active Substance: METHYLPREDNISOLONE SODIUM SUCCINATE
     Indication: RESPIRATORY TRACT CONGESTION
     Route: 042
     Dates: start: 20161010, end: 20161010
  6. AMBISOME [Concomitant]
     Active Substance: AMPHOTERICIN B
     Indication: RESPIRATORY TRACT CONGESTION
     Route: 042
     Dates: start: 20161007, end: 20161011
  7. PRIMPERAN [Concomitant]
     Active Substance: METOCLOPRAMIDE HYDROCHLORIDE
     Indication: PROPHYLAXIS OF NAUSEA AND VOMITING
     Route: 048
     Dates: start: 20160909, end: 20160909
  8. LASILIX [Concomitant]
     Active Substance: FUROSEMIDE
     Route: 042
     Dates: start: 20161009, end: 20161009
  9. CACIT D3 [Concomitant]
     Active Substance: CALCIUM\CHOLECALCIFEROL
     Indication: PROPHYLAXIS
     Route: 048
     Dates: end: 20161009
  10. ZOPHREN [Concomitant]
     Active Substance: ONDANSETRON
     Route: 048
     Dates: start: 20160922, end: 20160922
  11. TAZOCILLINE [Concomitant]
     Active Substance: PIPERACILLIN SODIUM\TAZOBACTAM SODIUM
     Indication: FEBRILE NEUTROPENIA
     Route: 042
     Dates: start: 20160914, end: 20160918
  12. COBIMETINIB. [Suspect]
     Active Substance: COBIMETINIB
     Indication: ACUTE MYELOID LEUKAEMIA
     Dosage: DAILY ON DAYS 1-21 OF EACH 28-DAY TREATMENT CYCLE
     Route: 048
     Dates: start: 20160908
  13. LEVOTHYROX [Concomitant]
     Active Substance: LEVOTHYROXINE
     Indication: HYPOTHYROIDISM
     Route: 048
     Dates: end: 20161010
  14. POLARAMINE [Concomitant]
     Active Substance: DEXCHLORPHENIRAMINE MALEATE
     Dosage: 1 AMPULE
     Route: 042
     Dates: start: 20160825, end: 20160825
  15. TIORFAN [Concomitant]
     Active Substance: RACECADOTRIL
     Route: 048
     Dates: start: 20160918, end: 20161007
  16. TIENAM [Concomitant]
     Active Substance: CILASTATIN SODIUM\IMIPENEM
     Indication: SEPSIS
     Route: 042
     Dates: start: 20161007, end: 20161011
  17. LASILIX [Concomitant]
     Active Substance: FUROSEMIDE
     Route: 042
     Dates: start: 20160927, end: 20160927
  18. LEDERFOLINE [Concomitant]
     Active Substance: LEUCOVORIN CALCIUM
     Route: 048
     Dates: start: 20160816, end: 20160907
  19. ZYLORIC [Concomitant]
     Active Substance: ALLOPURINOL
     Indication: PROPHYLAXIS
     Route: 048
     Dates: start: 20160907, end: 20161005
  20. IMODIUM [Concomitant]
     Active Substance: LOPERAMIDE HYDROCHLORIDE
     Indication: DIARRHOEA
     Route: 048
     Dates: start: 20160913, end: 20161007
  21. LASILIX [Concomitant]
     Active Substance: FUROSEMIDE
     Route: 042
     Dates: start: 20161010, end: 20161010
  22. CLAMOXYL (AMOXICILLIN TRIHYDRATE) [Concomitant]
     Active Substance: AMOXICILLIN
     Indication: INFECTION PROPHYLAXIS
     Route: 048
     Dates: start: 20160826, end: 20160913
  23. ZOPHREN [Concomitant]
     Active Substance: ONDANSETRON
     Indication: NAUSEA
     Route: 048
     Dates: start: 20160912, end: 20160920
  24. ZOPHREN [Concomitant]
     Active Substance: ONDANSETRON
     Route: 048
     Dates: start: 20161001, end: 20161001
  25. SMECTA [Concomitant]
     Active Substance: MONTMORILLONITE
     Dosage: 1 OTHER
     Route: 048
     Dates: start: 20160927, end: 20160927
  26. PARACETAMOL [Concomitant]
     Active Substance: ACETAMINOPHEN
     Indication: SEPSIS
     Route: 042
     Dates: start: 20160930, end: 20160930
  27. BRICANYL [Concomitant]
     Active Substance: TERBUTALINE SULFATE
     Dosage: DOSE:1, UNIT: INHALATION.
     Route: 055
     Dates: start: 20161010, end: 20161010
  28. ZELITREX [Concomitant]
     Active Substance: VALACYCLOVIR HYDROCHLORIDE
     Indication: INFECTION PROPHYLAXIS
     Route: 048
  29. SMECTA [Concomitant]
     Active Substance: MONTMORILLONITE
     Indication: DIARRHOEA
     Dosage: DOSE:1, UNIT: OTHER.
     Route: 048
     Dates: start: 20160913, end: 20160913
  30. VANCOMYCINE [Concomitant]
     Active Substance: VANCOMYCIN
     Indication: FEBRILE NEUTROPENIA
     Route: 048
     Dates: start: 20160924, end: 20160927
  31. MORPHINE [Concomitant]
     Active Substance: MORPHINE
     Indication: ACUTE RESPIRATORY FAILURE
     Route: 042
     Dates: start: 20161011, end: 20161013
  32. VENETOCLAX. [Suspect]
     Active Substance: VENETOCLAX
     Indication: ACUTE MYELOID LEUKAEMIA
     Dosage: DAILY ON DAYS 1-28 OF EACH 28 DAY TREATMENT CYCLE
     Route: 048
     Dates: start: 20160908
  33. LUMIGAN [Concomitant]
     Active Substance: BIMATOPROST
     Indication: OCULAR HYPERTENSION
     Route: 047
     Dates: end: 20161010
  34. DIFFU K [Concomitant]
     Active Substance: POTASSIUM CHLORIDE
     Indication: PROPHYLAXIS
     Route: 048
     Dates: start: 20161009
  35. TIORFAN [Concomitant]
     Active Substance: RACECADOTRIL
     Indication: DIARRHOEA
     Route: 048
     Dates: start: 20160911, end: 20160913
  36. TAZOCILLINE [Concomitant]
     Active Substance: PIPERACILLIN SODIUM\TAZOBACTAM SODIUM
     Indication: SEPSIS
     Route: 042
     Dates: start: 20160930
  37. AMIKLIN [Concomitant]
     Active Substance: AMIKACIN SULFATE
     Indication: FEBRILE NEUTROPENIA
     Route: 042
     Dates: start: 20160918, end: 20160918
  38. TIENAM [Concomitant]
     Active Substance: CILASTATIN SODIUM\IMIPENEM
     Indication: FEBRILE NEUTROPENIA
     Route: 042
     Dates: start: 20160918, end: 20160928
  39. SOLU-MEDROL [Concomitant]
     Active Substance: METHYLPREDNISOLONE SODIUM SUCCINATE
     Indication: RESPIRATORY FAILURE
     Route: 042
     Dates: start: 20161007, end: 20161007
  40. BRICANYL [Concomitant]
     Active Substance: TERBUTALINE SULFATE
     Indication: RESPIRATORY TRACT CONGESTION
     Dosage: DOSE:1, UNIT: INHALATION
     Route: 055
     Dates: start: 20161007, end: 20161007

REACTIONS (1)
  - Confusional state [Not Recovered/Not Resolved]

NARRATIVE: CASE EVENT DATE: 20161006
